FAERS Safety Report 8063286-0 (Version None)
Quarter: 2012Q1

REPORT INFORMATION
  Report Type: 
  Country: None (occurrence: None)
  Receive Date: 20120123
  Receipt Date: 20120120
  Transmission Date: 20120608
  Serious: Yes (Death)
  Sender: FDA-Public Use
  Company Number: PHHY2012CA004662

PATIENT
  Sex: Male

DRUGS (32)
  1. CANDESARTAN CILEXETIL [Concomitant]
     Dosage: 16 MG, EVERY 12 HOURS
     Route: 048
  2. GRAVOL TAB [Concomitant]
     Dosage: 1/2-1 TAB (25-50 MG) AS REQUIRED
     Route: 048
  3. OVOL [Concomitant]
     Dosage: 80 MG, PRN
     Route: 048
  4. CLOZARIL [Suspect]
     Indication: SCHIZOPHRENIA
     Route: 048
     Dates: start: 20000106
  5. CLOZARIL [Suspect]
     Dosage: 100 MG, DAILY AT 8 AM
     Route: 048
  6. AMLODIPINE [Concomitant]
     Dosage: 10 MG, AT BEDTIME
     Route: 048
  7. RESONIUM CALCIUM [Concomitant]
     Dosage: 30 G, EVERY SUNDAY, MONDAY, WEDNESDAY, FRIDAY AT
     Route: 048
  8. FERROUS FUMARATE [Concomitant]
     Dosage: 300 MG, EVERY DAY AT 10
     Route: 048
  9. HALOPERIDOL [Concomitant]
     Dosage: 5 MG, PRN (TWICE A DAY)
     Route: 030
  10. CALCIUM CARBONATE [Concomitant]
     Dosage: 1500 MG, DAILY AT 8 AM
     Route: 048
  11. LEVOTHYROXINE SODIUM [Concomitant]
     Dosage: 0.1 MG, AT BEDTIME
     Route: 048
  12. QUININE SULFATE [Concomitant]
     Dosage: 300 MG, EVERY TUESDAY, THURSDAY, SATURDAY AT 08
     Route: 048
  13. ACETAMINOPHEN [Concomitant]
     Dosage: 325-650 MG, AS REQUIRED (EVERY 4 HOURS, PRN)
     Route: 048
  14. CLOZARIL [Suspect]
     Dosage: 75 MG, (EVERY EVENING 50 MG, 25 MG DAILY AT 8 AM)
     Route: 048
  15. RESONIUM CALCIUM [Concomitant]
     Dosage: 30 G, DAILY AT 8 AM
     Route: 048
  16. ZYPREXA [Concomitant]
     Dosage: 5 MG, AT BEDTIME
     Route: 048
  17. CLOZARIL [Suspect]
     Dosage: 175 MG, (125 MG AT 2 AM, AND 50 MG AT 2 PM)
     Route: 048
  18. ALLOPURINOL [Concomitant]
     Dosage: 200 MG, DAILY AT 8 AM
     Route: 048
  19. TENORMIN [Concomitant]
     Dosage: 100 MG, EVERY EVENING
     Route: 048
  20. COLACE [Concomitant]
     Dosage: 100 MG, BID
     Route: 048
  21. HALOPERIDOL [Concomitant]
     Dosage: 5 MG, PRN (TWICE A DAY)
     Route: 048
  22. LONITEN [Concomitant]
     Dosage: 2.5 MG, EVERY DAY AT 08, 14, 12
     Route: 048
  23. REPLAVITE [Concomitant]
     Dosage: 1 TAB EVERY DAY AT 21
     Route: 048
  24. GRAVOL TAB [Concomitant]
     Dosage: 25 MG, (EVERY 4 HOURS AS REQUIRED)
     Route: 030
  25. LACTULOSE [Concomitant]
     Dosage: 30 ML, BID (PRN)
     Route: 048
  26. OLANZAPINE [Concomitant]
     Dosage: 5 MG, PRN (EVERY 6 HRS AT 6 AM, 12 NOON, 6 PM AND MIDN)
     Route: 002
  27. CALCIUM CARBONATE [Concomitant]
     Dosage: 2000 MG, EVERYDAY AT 12.17
     Route: 048
  28. EPREX [Concomitant]
     Dosage: 4000 IU, 3 TIMES WEEKLY
     Route: 042
  29. DOSTINEX [Concomitant]
     Dosage: 0.5 MG, EVERY THURSDAY AT 08
     Route: 048
  30. SEVELAMER [Concomitant]
     Dosage: 2400 MG, EVERY DAY AT 08, 12, 17
  31. HYTRIN [Concomitant]
     Dosage: 8 MG, AT BEDTIME
     Route: 048
  32. SENNOSIDE [Concomitant]
     Dosage: 8.6 MG, PRN
     Route: 048

REACTIONS (2)
  - CARDIAC ARREST [None]
  - ACUTE MYOCARDIAL INFARCTION [None]
